FAERS Safety Report 15000371 (Version 1)
Quarter: 2018Q2

REPORT INFORMATION
  Report Type: Spontaneous
  Country: FR (occurrence: FR)
  Receive Date: 20180612
  Receipt Date: 20180612
  Transmission Date: 20180711
  Serious: Yes (Other)
  Sender: FDA-Public Use
  Company Number: FR-PFIZER INC-2018230504

PATIENT
  Age: 69 Year
  Sex: Female
  Weight: 62 kg

DRUGS (17)
  1. ZELITREX [Suspect]
     Active Substance: VALACYCLOVIR HYDROCHLORIDE
     Indication: PROPHYLAXIS
     Dosage: 500 MG, ALTERNATE DAY
     Route: 048
  2. ENDOXAN /00021101/ [Suspect]
     Active Substance: CYCLOPHOSPHAMIDE
     Indication: NEPHROPATHY
     Dosage: 1500 MG, CYCLIC
     Route: 042
     Dates: start: 20170626, end: 201712
  3. UVEDOSE [Suspect]
     Active Substance: CHOLECALCIFEROL
     Dosage: 100000 IU, UNK
     Route: 048
  4. DEPAMIDE [Suspect]
     Active Substance: VALPROMIDE
     Dosage: 300 MG, 1X/DAY
     Route: 048
  5. CALCIDIA [Suspect]
     Active Substance: CALCIUM CARBONATE
     Indication: CHRONIC KIDNEY DISEASE
     Dosage: 1.54 G, 1X/DAY
     Route: 048
  6. DEXAMETHASONE. [Suspect]
     Active Substance: DEXAMETHASONE
     Indication: NEPHROPATHY
     Dosage: 160 MG, CYCLIC
     Route: 042
     Dates: start: 20170626
  7. EFFEXOR LP [Suspect]
     Active Substance: VENLAFAXINE HYDROCHLORIDE
     Dosage: 150 MG, 1X/DAY
     Route: 048
  8. NORSET [Suspect]
     Active Substance: MIRTAZAPINE
     Dosage: 15 MG, 1X/DAY
     Route: 048
  9. LASILIX /00032601/ [Suspect]
     Active Substance: FUROSEMIDE
     Indication: HYPERTENSION
     Dosage: 40 MG, 1X/DAY
     Route: 048
  10. LOXEN L P [Suspect]
     Active Substance: NICARDIPINE HYDROCHLORIDE
     Indication: HYPERTENSION
     Dosage: 50 MG, 1X/DAY
     Route: 048
  11. AZANTAC [Suspect]
     Active Substance: RANITIDINE HYDROCHLORIDE
     Dosage: 150 MG, 1X/DAY
     Route: 048
  12. VELCADE [Suspect]
     Active Substance: BORTEZOMIB
     Indication: NEPHROPATHY
     Dosage: 8.8 MG, CYCLIC
     Route: 042
     Dates: start: 20170626, end: 20171212
  13. IMNOVID [Suspect]
     Active Substance: POMALIDOMIDE
     Indication: NEPHROPATHY
     Dosage: 84 MG, EVERY 28 DAYS
     Route: 042
     Dates: start: 20171219, end: 20180424
  14. ORACILLINE /00001801/ [Suspect]
     Active Substance: PENICILLIN V
     Indication: PROPHYLAXIS
     Dosage: 2 MILLION IU, 1X/DAY
     Route: 048
  15. PRINCI B (CYANOCOBALAMIN\PYRIDOXINE HYDROCHLORIDE\THIAMINE) [Suspect]
     Active Substance: CYANOCOBALAMIN\PYRIDOXINE HYDROCHLORIDE\THIAMINE
     Indication: VITAMIN SUPPLEMENTATION
     Dosage: 2 DF, 1X/DAY
     Route: 048
  16. IMOVANE [Suspect]
     Active Substance: ZOPICLONE
     Dosage: 11.25 MG, 1X/DAY
     Route: 048
  17. ARANESP [Suspect]
     Active Substance: DARBEPOETIN ALFA
     Indication: CHRONIC KIDNEY DISEASE
     Dosage: 60 MG, UNK
     Route: 065

REACTIONS (3)
  - Bronchiolitis [Not Recovered/Not Resolved]
  - Bronchiectasis [Not Recovered/Not Resolved]
  - Obstructive airways disorder [Not Recovered/Not Resolved]

NARRATIVE: CASE EVENT DATE: 20180129
